FAERS Safety Report 8810259 (Version 2)
Quarter: 2012Q4

REPORT INFORMATION
  Report Type: 
  Country: US (occurrence: US)
  Receive Date: 20120926
  Receipt Date: 20121009
  Transmission Date: 20130627
  Serious: Yes (Other)
  Sender: FDA-Public Use
  Company Number: US-009507513-1209USA008735

PATIENT
  Sex: Female

DRUGS (1)
  1. SAPHRIS [Suspect]
     Route: 060

REACTIONS (1)
  - Suicide attempt [Unknown]
